FAERS Safety Report 10415133 (Version 1)
Quarter: 2014Q3

REPORT INFORMATION
  Report Type: Other
  Country: FR (occurrence: FR)
  Receive Date: 20140828
  Receipt Date: 20140828
  Transmission Date: 20150326
  Serious: Yes (Other)
  Sender: FDA-Public Use
  Company Number: FR-ASTELLAS-2014US011055

PATIENT
  Sex: Female
  Weight: 105 kg

DRUGS (4)
  1. FUNGIZONE [Suspect]
     Active Substance: AMPHOTERICIN B
     Indication: PNEUMONIA BACTERIAL
     Route: 042
     Dates: start: 20140627, end: 20140630
  2. AMPHOTERICIN B, LIPOSOME [Suspect]
     Active Substance: AMPHOTERICIN B
     Indication: PNEUMONIA BACTERIAL
     Route: 042
  3. VORICONAZOLE. [Concomitant]
     Active Substance: VORICONAZOLE
     Indication: PRODUCT USED FOR UNKNOWN INDICATION
     Dosage: UNK, UNKNOWN FREQ.
     Route: 065
  4. VORICONAZOLE. [Concomitant]
     Active Substance: VORICONAZOLE

REACTIONS (2)
  - Medication error [Unknown]
  - Renal failure acute [Recovering/Resolving]

NARRATIVE: CASE EVENT DATE: 20140627
